FAERS Safety Report 5025847-2 (Version None)
Quarter: 2006Q2

REPORT INFORMATION
  Report Type: 
  Country: None (occurrence: None)
  Receive Date: 20060608
  Receipt Date: 20060608
  Transmission Date: 20061013
  Serious: Yes (Other)
  Sender: FDA-Public Use
  Company Number: None

PATIENT
  Sex: Male
  Weight: 74.3899 kg

DRUGS (9)
  1. PLAVIX [Suspect]
     Indication: STENT PLACEMENT
     Dosage: 75 MG PO QD
     Route: 048
     Dates: start: 20051207, end: 20051213
  2. SIMVASTATIN [Concomitant]
  3. RANITIDINE [Concomitant]
  4. KLO-CON [Concomitant]
  5. METOPROLOL TARTRATE [Concomitant]
  6. TRAZODONE HCL [Concomitant]
  7. LORAZEPAM [Concomitant]
  8. MAGNESIUM OXIDE [Concomitant]
  9. . [Concomitant]

REACTIONS (1)
  - RASH ERYTHEMATOUS [None]
